FAERS Safety Report 19078223 (Version 1)
Quarter: 2021Q1

REPORT INFORMATION
  Report Type: Spontaneous
  Country: US (occurrence: US)
  Receive Date: 20210331
  Receipt Date: 20210331
  Transmission Date: 20210420
  Serious: Yes (Disabling)
  Sender: FDA-Public Use
  Company Number: US-TEVA-2021-US-1895514

PATIENT
  Sex: Male

DRUGS (1)
  1. METHYLPREDNISOLONE ACETATE TEVA [Suspect]
     Active Substance: METHYLPREDNISOLONE ACETATE
     Route: 065
     Dates: start: 20191220

REACTIONS (2)
  - Joint injury [Not Recovered/Not Resolved]
  - Infection [Unknown]
